FAERS Safety Report 12188263 (Version 2)
Quarter: 2016Q2

REPORT INFORMATION
  Report Type: Spontaneous
  Country: US (occurrence: US)
  Receive Date: 20160317
  Receipt Date: 20160527
  Transmission Date: 20160815
  Serious: Yes (Hospitalization, Other)
  Sender: FDA-Public Use
  Company Number: US-ELI_LILLY_AND_COMPANY-US201603006098

PATIENT
  Age: 55 Year
  Sex: Male
  Weight: 104 kg

DRUGS (34)
  1. GABAPENTIN. [Concomitant]
     Active Substance: GABAPENTIN
     Indication: CRANIOCEREBRAL INJURY
     Dosage: UNK
     Dates: start: 200606, end: 200702
  2. GABAPENTIN. [Concomitant]
     Active Substance: GABAPENTIN
     Dosage: UNK
     Dates: start: 201005, end: 201008
  3. TOPIRAMATE. [Concomitant]
     Active Substance: TOPIRAMATE
     Indication: CRANIOCEREBRAL INJURY
     Dosage: UNK
     Dates: start: 201001, end: 201008
  4. ALPRAZOLAMS [Concomitant]
     Indication: ANXIETY
     Dosage: UNK
     Dates: start: 201406
  5. CRESTOR [Concomitant]
     Active Substance: ROSUVASTATIN CALCIUM
     Indication: MYOCARDIAL INFARCTION
     Dosage: UNK
     Dates: start: 201406
  6. FISH OIL [Concomitant]
     Active Substance: FISH OIL
     Indication: MYOCARDIAL INFARCTION
     Dosage: UNK
     Dates: start: 201406
  7. CYMBALTA [Concomitant]
     Active Substance: DULOXETINE HYDROCHLORIDE
     Indication: CRANIOCEREBRAL INJURY
     Dosage: UNK
     Dates: start: 2008
  8. ZONISAMIDE. [Concomitant]
     Active Substance: ZONISAMIDE
     Dosage: UNK
     Dates: start: 200808, end: 200809
  9. NAMENDA [Concomitant]
     Active Substance: MEMANTINE HYDROCHLORIDE
     Indication: AMNESIA
     Dosage: UNK
     Dates: start: 200802, end: 200809
  10. PROVIGIL [Concomitant]
     Active Substance: MODAFINIL
     Indication: SLEEP APNOEA SYNDROME
     Dosage: UNK
     Dates: start: 201005, end: 201008
  11. DULOXETINE. [Concomitant]
     Active Substance: DULOXETINE
     Indication: DEPRESSION
     Dosage: UNK
     Dates: start: 201406
  12. CLONAZEPAM. [Concomitant]
     Active Substance: CLONAZEPAM
     Dosage: UNK
     Dates: start: 200711, end: 200712
  13. AXIRON [Suspect]
     Active Substance: TESTOSTERONE
     Dosage: UNK UNK, QD
     Route: 065
     Dates: start: 201210, end: 201211
  14. CLONAZEPAM. [Concomitant]
     Active Substance: CLONAZEPAM
     Indication: CRANIOCEREBRAL INJURY
     Dosage: UNK
     Dates: start: 200702, end: 200706
  15. SEROQUEL [Concomitant]
     Active Substance: QUETIAPINE FUMARATE
     Indication: CRANIOCEREBRAL INJURY
     Dosage: UNK
     Dates: start: 200706, end: 200707
  16. AXIRON [Suspect]
     Active Substance: TESTOSTERONE
     Indication: BLOOD TESTOSTERONE DECREASED
     Dosage: UNK UNK, QD
     Route: 065
     Dates: start: 201111, end: 201206
  17. ZONEGRAN [Concomitant]
     Active Substance: ZONISAMIDE
     Indication: CRANIOCEREBRAL INJURY
     Dosage: UNK
     Dates: start: 200608, end: 200702
  18. LEXAPRO [Concomitant]
     Active Substance: ESCITALOPRAM OXALATE
     Indication: CRANIOCEREBRAL INJURY
     Dosage: UNK
     Dates: start: 200703, end: 200707
  19. ZONISAMIDE. [Concomitant]
     Active Substance: ZONISAMIDE
     Indication: CRANIOCEREBRAL INJURY
     Dosage: UNK
     Dates: start: 200705, end: 200706
  20. ZONISAMIDE. [Concomitant]
     Active Substance: ZONISAMIDE
     Dosage: UNK
     Dates: start: 200803, end: 200804
  21. AXIRON [Suspect]
     Active Substance: TESTOSTERONE
     Dosage: UNK UNK, QD
     Route: 065
     Dates: start: 201304, end: 201406
  22. METOPROLOL. [Concomitant]
     Active Substance: METOPROLOL
     Indication: MYOCARDIAL INFARCTION
     Dosage: UNK
     Dates: start: 201406
  23. CITALOPRAM [Concomitant]
     Active Substance: CITALOPRAM HYDROBROMIDE
     Indication: DEPRESSION
     Dosage: UNK
     Dates: start: 201406
  24. KLONOPIN [Concomitant]
     Active Substance: CLONAZEPAM
     Indication: ANXIETY
     Dosage: UNK
     Dates: start: 201406
  25. VYVANSE [Concomitant]
     Active Substance: LISDEXAMFETAMINE DIMESYLATE
     Indication: CRANIOCEREBRAL INJURY
     Dosage: UNK
     Dates: start: 200812
  26. GABAPENTIN. [Concomitant]
     Active Substance: GABAPENTIN
     Dosage: UNK
     Dates: start: 200803, end: 200804
  27. CLONAZEPAM. [Concomitant]
     Active Substance: CLONAZEPAM
     Dosage: UNK
     Dates: start: 200803, end: 200805
  28. MIRTAZAPINE. [Concomitant]
     Active Substance: MIRTAZAPINE
     Indication: DEPRESSION
     Dosage: UNK
     Dates: start: 201105, end: 201106
  29. CLONAZEPAM. [Concomitant]
     Active Substance: CLONAZEPAM
     Dosage: UNK
     Dates: start: 201103, end: 201104
  30. CONCERTA [Concomitant]
     Active Substance: METHYLPHENIDATE HYDROCHLORIDE
     Indication: CRANIOCEREBRAL INJURY
     Dosage: UNK
     Dates: start: 200901, end: 200907
  31. EFFEXOR [Concomitant]
     Active Substance: VENLAFAXINE HYDROCHLORIDE
     Indication: CRANIOCEREBRAL INJURY
     Dosage: UNK
     Dates: start: 200606, end: 200702
  32. GABAPENTIN. [Concomitant]
     Active Substance: GABAPENTIN
     Dosage: UNK
     Dates: start: 200705, end: 200706
  33. LEXAPRO [Concomitant]
     Active Substance: ESCITALOPRAM OXALATE
     Dosage: UNK
     Dates: start: 200711, end: 200712
  34. EMSAM [Concomitant]
     Active Substance: SELEGILINE
     Indication: DEPRESSION
     Dosage: UNK
     Dates: start: 200803, end: 200811

REACTIONS (1)
  - Acute myocardial infarction [Unknown]

NARRATIVE: CASE EVENT DATE: 20140614
